FAERS Safety Report 5470952-X (Version None)
Quarter: 2007Q3

REPORT INFORMATION
  Report Type: 
  Country: None (occurrence: None)
  Receive Date: 20070928
  Receipt Date: 20070920
  Transmission Date: 20080115
  Serious: Yes (Hospitalization)
  Sender: FDA-Public Use
  Company Number: AT-AMGEN-US234272

PATIENT
  Age: 45 Year
  Sex: Female
  Weight: 54 kg

DRUGS (3)
  1. ENBREL [Suspect]
     Indication: PSORIATIC ARTHROPATHY
     Dates: start: 20041221
  2. EBETREXAT [Suspect]
     Indication: PSORIATIC ARTHROPATHY
  3. FOLIC ACID [Concomitant]
     Dosage: 1 TIME PER WEEK (DOSE UNSPECIFIED)

REACTIONS (3)
  - GALLBLADDER OPERATION [None]
  - LIPOMA EXCISION [None]
  - OPERATIVE HAEMORRHAGE [None]
